FAERS Safety Report 10216614 (Version 1)
Quarter: 2014Q2

REPORT INFORMATION
  Report Type: Spontaneous
  Country: US (occurrence: US)
  Receive Date: 20140604
  Receipt Date: 20140604
  Transmission Date: 20141212
  Serious: No
  Sender: FDA-Public Use
  Company Number: US-PFIZER INC-2014151821

PATIENT
  Age: 43 Year
  Sex: Male
  Weight: 117.91 kg

DRUGS (4)
  1. XANAX XR [Suspect]
     Indication: ANXIETY
     Dosage: 2 MG, 2X/DAY
     Dates: start: 20140528, end: 20140601
  2. XANAX XR [Suspect]
     Dosage: 5 MG, DAILY
     Dates: start: 20140602
  3. PROZAC [Concomitant]
     Dosage: 20 MG, DAILY
  4. WELLBUTRIN [Concomitant]
     Dosage: 300 MG, DAILY

REACTIONS (1)
  - Drug ineffective [Unknown]
